FAERS Safety Report 8508453-4 (Version None)
Quarter: 2012Q2

REPORT INFORMATION
  Report Type: 
  Country: None (occurrence: None)
  Receive Date: 20120405
  Receipt Date: 20090429
  Transmission Date: 20120825
  Serious: Yes (Disabling)
  Sender: FDA-Public Use
  Company Number: PHEH2009US00678

PATIENT
  Age: 76 Year
  Sex: Female
  Weight: 62.1 kg

DRUGS (2)
  1. AMBIEN [Concomitant]
  2. RECLAST [Suspect]
     Dosage: YEARLY, INFUSION
     Dates: start: 20081215

REACTIONS (4)
  - BACK PAIN [None]
  - DYSSTASIA [None]
  - BONE PAIN [None]
  - CONSTIPATION [None]
